FAERS Safety Report 4754279-7 (Version None)
Quarter: 2005Q3

REPORT INFORMATION
  Report Type: 
  Country: None (occurrence: None)
  Receive Date: 20050825
  Receipt Date: 20050823
  Transmission Date: 20060218
  Serious: Yes (Death)
  Sender: FDA-Public Use
  Company Number: THQ2005A00413

PATIENT
  Sex: Male

DRUGS (22)
  1. LANSOPRAZOLE [Suspect]
     Dosage: 30 MG (30 MG, 1 IN 1 D)
     Route: 048
  2. COMBIVENT [Suspect]
     Dosage: 4 IN 1 D
     Route: 055
  3. SPIRIVA [Suspect]
     Dosage: 18 MCG
     Route: 055
  4. SALBUTAMOL (INHALANT) [Suspect]
     Dosage: 100 MCG, TWICE DAILY WHEN REQUIRED)
     Route: 055
  5. ASPIRIN [Suspect]
     Dosage: 75 MG
     Route: 048
  6. ATORVASTATIN CALCIUM [Suspect]
     Dosage: 10 MG
  7. BECLOMETASONE (INHALANT) [Suspect]
     Dosage: 100 MCG (50 MCG, 2 IN 1 D)
     Route: 055
  8. FRUMIL [Suspect]
  9. DEXAMETHASONE [Suspect]
     Dosage: 2 MG
  10. DILTIAZEM [Suspect]
     Dosage: 120 MG (60 MG, 2 IN 1 D)
  11. DOSULEPIN [Suspect]
     Dosage: 75 MG, ONCE EVERY EVENING
  12. FUROSEMIDE [Suspect]
     Dosage: 80 MG
  13. GAVISCON [Suspect]
     Dosage: 40 MGL (10 ML, 4 IN 1 D)
  14. LACTULOSE [Suspect]
     Dosage: 3.35 G/5 ML
  15. METOCLOPRAMIDE [Suspect]
     Dosage: 30 MG (10 MG, 3 IN 1 D)
  16. NITROLINGUAL (GLYCERYL TRINITRATE) [Suspect]
     Dosage: 400 MG
  17. NOZINAN (LEVOMEPROMAZINE) [Suspect]
     Dosage: 100 MG (25 MG, 4 IN 1 D)
  18. OXYCODONE HCL [Suspect]
     Dosage: 40 MG (20 MG, 2 IN 1 D)
  19. OXYGEN [Suspect]
     Route: 055
  20. SPIRONOLACTONE [Suspect]
     Dosage: 50 MG
  21. SYMBICORT [Suspect]
     Dosage: 200/ UG 1-2 PUFFS TWIECE DAILY
  22. TEMAZEPAM [Suspect]
     Dosage: 10 MG , 1-2 EVERY EVENING

REACTIONS (2)
  - LUNG NEOPLASM MALIGNANT [None]
  - MESOTHELIOMA MALIGNANT [None]
